FAERS Safety Report 6084429-4 (Version None)
Quarter: 2009Q1

REPORT INFORMATION
  Report Type: 
  Country: None (occurrence: None)
  Receive Date: 20090219
  Receipt Date: 20090210
  Transmission Date: 20090719
  Serious: Yes (Death)
  Sender: FDA-Public Use
  Company Number: B0559693A

PATIENT
  Age: 66 Year
  Sex: Male

DRUGS (6)
  1. AVANDAMET [Suspect]
     Route: 048
     Dates: start: 20060420, end: 20070401
  2. CRESTOR [Concomitant]
     Dosage: 5MG PER DAY
  3. AMLOR [Concomitant]
     Dosage: 10MG PER DAY
  4. LOSARTAN POTASSIUM AND HYDROCHLOROTHIAZIDE [Concomitant]
  5. RIVOTRIL [Concomitant]
     Dosage: 10DROP PER DAY
     Route: 048
  6. AMARYL [Concomitant]
     Dosage: 4MG PER DAY
     Route: 048

REACTIONS (1)
  - DEATH [None]
